FAERS Safety Report 18171443 (Version 1)
Quarter: 2020Q3

REPORT INFORMATION
  Report Type: Report from Study
  Country: US (occurrence: US)
  Receive Date: 20200819
  Receipt Date: 20200819
  Transmission Date: 20201103
  Serious: No
  Sender: FDA-Public Use
  Company Number: US-AMGEN-USA-20170809720

PATIENT
  Age: 74 Year
  Sex: Female

DRUGS (2)
  1. OTEZLA [Suspect]
     Active Substance: APREMILAST
     Indication: PSORIASIS
     Dosage: 30 MILLIGRAM, BID
     Route: 048
     Dates: start: 20170601, end: 20170829
  2. OTEZLA [Suspect]
     Active Substance: APREMILAST
     Dosage: UNK 28 DAY START PACK
     Route: 048
     Dates: start: 202004

REACTIONS (4)
  - Cough [Unknown]
  - Therapy partial responder [Unknown]
  - Product supply issue [Unknown]
  - Drug ineffective [Unknown]

NARRATIVE: CASE EVENT DATE: 2017
